FAERS Safety Report 7431228-4 (Version None)
Quarter: 2011Q2

REPORT INFORMATION
  Report Type: 
  Country: None (occurrence: None)
  Receive Date: 20110421
  Receipt Date: 20110411
  Transmission Date: 20111010
  Serious: Yes (Other)
  Sender: FDA-Public Use
  Company Number: ES-RB-025937-11

PATIENT
  Age: 39 Year
  Sex: Male

DRUGS (1)
  1. SUBOXONE [Suspect]
     Indication: DRUG DEPENDENCE
     Dosage: NO OTHER DOSING DETAILS KNOWN.
     Route: 065
     Dates: start: 20100319, end: 20100521

REACTIONS (1)
  - PSYCHOTIC DISORDER [None]
